FAERS Safety Report 25849324 (Version 3)
Quarter: 2025Q4

REPORT INFORMATION
  Report Type: Spontaneous
  Country: EU (occurrence: EU)
  Receive Date: 20250925
  Receipt Date: 20251027
  Transmission Date: 20260117
  Serious: Yes (Other)
  Sender: JOHNSON AND JOHNSON
  Company Number: EU-ORESUND-25OPAJY1024P

PATIENT
  Age: 36 Year
  Sex: Male

DRUGS (8)
  1. INFLIXIMAB [Suspect]
     Active Substance: INFLIXIMAB
     Indication: Psoriasis
     Dosage: MAINTENANCE INFUSION EVERY 8 WEEKS SINCE MAY 2018
     Route: 041
     Dates: start: 201805
  2. INFLIXIMAB [Suspect]
     Active Substance: INFLIXIMAB
     Indication: Psoriatic arthropathy
     Dosage: 5 MG/KG (BODY WEIGHT IN WEEKS 0, 2, AND 6)
     Route: 041
     Dates: start: 2018
  3. SECUKINUMAB [Suspect]
     Active Substance: SECUKINUMAB
     Indication: Psoriatic arthropathy
     Dosage: 300 MG WEEKLY
     Dates: start: 202101
  4. SECUKINUMAB [Suspect]
     Active Substance: SECUKINUMAB
     Indication: Psoriasis
     Dosage: 300 MG ONCE A MONTH
  5. ACITRETIN [Suspect]
     Active Substance: ACITRETIN
     Indication: Product used for unknown indication
     Dosage: 35 MG A DAY
  6. METHOTREXATE [Suspect]
     Active Substance: METHOTREXATE
     Indication: Product used for unknown indication
     Dosage: 10 MG, QW (10 MG A WEEK)
     Route: 065
  7. METHOTREXATE [Suspect]
     Active Substance: METHOTREXATE
     Dosage: 10 MG A WEEK
  8. METHYLPREDNISOLONE [Suspect]
     Active Substance: METHYLPREDNISOLONE
     Indication: Product used for unknown indication
     Dosage: 4 MG, QD
     Route: 065

REACTIONS (16)
  - Superficial spreading melanoma stage unspecified [Unknown]
  - Colitis ulcerative [Unknown]
  - Gastrointestinal mucosal necrosis [Unknown]
  - Abscess intestinal [Unknown]
  - Fibrous histiocytoma [Unknown]
  - Large intestine polyp [Unknown]
  - Therapy change [Unknown]
  - Skin lesion [Unknown]
  - Drug ineffective [Unknown]
  - Therapy change [Unknown]
  - Skin lesion removal [Unknown]
  - Skin lesion [Unknown]
  - Melanocytic naevus [Unknown]
  - Biopsy intestine abnormal [Unknown]
  - Skin lesion [Unknown]
  - Skin mass [Unknown]
